FAERS Safety Report 5774043-X (Version None)
Quarter: 2008Q2

REPORT INFORMATION
  Report Type: 
  Country: None (occurrence: None)
  Receive Date: 20080601
  Receipt Date: 20080314
  Transmission Date: 20081010
  Serious: No
  Sender: FDA-Public Use
  Company Number: US200803003883

PATIENT
  Age: 65 Year
  Sex: Female
  Weight: 90.7 kg

DRUGS (4)
  1. BYETTA [Suspect]
     Indication: TYPE 2 DIABETES MELLITUS
     Dosage: 5 UG, 2/D, SUBCUTANEOUS
     Route: 058
     Dates: start: 20080304
  2. METFORMIN HCL [Concomitant]
  3. GLIPIZIDE [Concomitant]
  4. B12 (CYANOCOBALAMIN-TANNIN COMPLEX) [Concomitant]

REACTIONS (3)
  - COLD SWEAT [None]
  - FEELING ABNORMAL [None]
  - FLUSHING [None]
